FAERS Safety Report 6644464-1 (Version None)
Quarter: 2010Q1

REPORT INFORMATION
  Report Type: 
  Country: None (occurrence: None)
  Receive Date: 20100319
  Receipt Date: 20100319
  Transmission Date: 20100710
  Serious: Yes (Hospitalization)
  Sender: FDA-Public Use
  Company Number: None

PATIENT
  Age: 78 Year
  Sex: Male
  Weight: 69.9 kg

DRUGS (10)
  1. COUMADIN [Suspect]
     Indication: ATRIAL FIBRILLATION
     Dosage: 5 MG DAILY PO, RECENT SINCE 12/23
     Route: 048
  2. ASPIRIN [Suspect]
     Indication: MYOCARDIAL INFARCTION
     Dosage: 81 MG DAILY PO, CHRONIC
     Route: 048
  3. CALCIUM CARBONATE [Concomitant]
  4. DUONEB [Concomitant]
  5. TYLENOL-500 [Concomitant]
  6. METOPROLOL [Concomitant]
  7. IMDUR [Concomitant]
  8. VYTORIN [Concomitant]
  9. CITALOPRAM HYDROBROMIDE [Concomitant]
  10. AMLODIPINE [Concomitant]

REACTIONS (3)
  - HAEMATURIA [None]
  - INTERNATIONAL NORMALISED RATIO INCREASED [None]
  - RECTAL HAEMORRHAGE [None]
